FAERS Safety Report 4848121-3 (Version None)
Quarter: 2005Q4

REPORT INFORMATION
  Report Type: 
  Country: None (occurrence: None)
  Receive Date: 20051206
  Receipt Date: 20051201
  Transmission Date: 20060501
  Serious: Yes (Other)
  Sender: FDA-Public Use
  Company Number: HQWYE194124OCT05

PATIENT
  Sex: Female

DRUGS (1)
  1. PROTONIX [Suspect]
     Indication: GASTROOESOPHAGEAL REFLUX DISEASE
     Dosage: ^40 MG^ (FREQUENCY UNSPECIFIED)
     Route: 048
     Dates: start: 20051006, end: 20051001

REACTIONS (1)
  - CORNEAL GRAFT REJECTION [None]
